FAERS Safety Report 5098739-0 (Version None)
Quarter: 2006Q3

REPORT INFORMATION
  Report Type: 
  Country: None (occurrence: None)
  Receive Date: 20060907
  Receipt Date: 20060816
  Transmission Date: 20061208
  Serious: Yes (Life-Threatening)
  Sender: FDA-Public Use
  Company Number: US-GLAXOSMITHKLINE-A0617127A

PATIENT
  Age: 32 Year
  Sex: Female
  Weight: 125.9 kg

DRUGS (9)
  1. LAMICTAL [Suspect]
     Indication: BIPOLAR DISORDER
     Dosage: 25MG PER DAY
     Route: 048
     Dates: start: 20060802, end: 20060813
  2. METFORMIN HCL [Concomitant]
     Dosage: 1000MG TWICE PER DAY
     Route: 048
  3. ASPIRIN [Concomitant]
     Indication: PROPHYLAXIS
     Dosage: 81MG PER DAY
     Route: 048
  4. ACTOS [Concomitant]
     Dosage: 30MG PER DAY
     Route: 048
  5. CLARITIN [Concomitant]
     Indication: MULTIPLE ALLERGIES
     Dosage: 10MG PER DAY
     Route: 048
  6. RHINOCORT [Concomitant]
     Indication: MULTIPLE ALLERGIES
     Dosage: 1SPR AS REQUIRED
     Route: 045
  7. AVIANE-21 [Concomitant]
     Dosage: 1TAB PER DAY
     Route: 048
  8. CALCIUM GLUCONATE [Concomitant]
     Dosage: 600MG PER DAY
     Route: 048
  9. IRON [Concomitant]
     Dosage: 25MG TWICE PER DAY
     Route: 048

REACTIONS (2)
  - RASH [None]
  - THROAT TIGHTNESS [None]
